FAERS Safety Report 6275352-0 (Version None)
Quarter: 2009Q3

REPORT INFORMATION
  Report Type: 
  Country: None (occurrence: None)
  Receive Date: 20090721
  Receipt Date: 20090710
  Transmission Date: 20100115
  Serious: Yes (Other)
  Sender: FDA-Public Use
  Company Number: JP-AVENTIS-200911955JP

PATIENT
  Age: 75 Year
  Sex: Female

DRUGS (2)
  1. ENOXAPARIN SODIUM [Suspect]
     Route: 058
     Dates: start: 20090619, end: 20090629
  2. UNKNOWN DRUG [Concomitant]

REACTIONS (2)
  - CHOLESTATIC LIVER INJURY [None]
  - HEPATIC FUNCTION ABNORMAL [None]
